FAERS Safety Report 7520043-9 (Version None)
Quarter: 2011Q2

REPORT INFORMATION
  Report Type: 
  Country: None (occurrence: None)
  Receive Date: 20110602
  Receipt Date: 20110516
  Transmission Date: 20111010
  Serious: No
  Sender: FDA-Public Use
  Company Number: DE-ASTRAZENECA-2011SE29606

PATIENT
  Age: 43 Year
  Sex: Female
  Weight: 58 kg

DRUGS (7)
  1. SEROQUEL [Suspect]
     Route: 048
  2. PREDNISOLONE [Concomitant]
  3. LORAZEPAM [Concomitant]
     Dosage: AS REQIRED
  4. HUMIRA [Suspect]
     Indication: ANKYLOSING SPONDYLITIS
     Route: 058
     Dates: start: 20110101, end: 20110101
  5. ENBREL [Suspect]
     Indication: ANKYLOSING SPONDYLITIS
     Route: 058
     Dates: start: 20110220
  6. BISOPROLOL FUMARATE [Concomitant]
  7. CONTRACEPTIVES [Concomitant]

REACTIONS (5)
  - RASH [None]
  - MUSCULOSKELETAL STIFFNESS [None]
  - THROMBOCYTOPENIA [None]
  - FEELING COLD [None]
  - PARAESTHESIA [None]
